FAERS Safety Report 7553080-9 (Version None)
Quarter: 2011Q2

REPORT INFORMATION
  Report Type: 
  Country: None (occurrence: None)
  Receive Date: 20110616
  Receipt Date: 20110607
  Transmission Date: 20111010
  Serious: Yes (Hospitalization)
  Sender: FDA-Public Use
  Company Number: IT-UCBSA-035292

PATIENT
  Sex: Female

DRUGS (9)
  1. DEURSIL [Concomitant]
  2. OMEPRAZOLE [Suspect]
     Indication: GASTRITIS PROPHYLAXIS
     Route: 048
     Dates: start: 20100707, end: 20110322
  3. LASIX [Suspect]
     Indication: HYPERTENSION
     Route: 048
     Dates: start: 20110101, end: 20110322
  4. PHENOBARBITAL TAB [Concomitant]
  5. ATENOLOL [Concomitant]
  6. EUTIROX [Concomitant]
  7. CITALOPRAM HYDROBROMIDE [Concomitant]
  8. MONOKET [Suspect]
     Indication: HYPERTENSION
     Route: 048
     Dates: start: 20090101, end: 20110322
  9. TICLOPIDINE HCL [Concomitant]

REACTIONS (1)
  - HYPOKALAEMIA [None]
